FAERS Safety Report 17187234 (Version 1)
Quarter: 2019Q4

REPORT INFORMATION
  Report Type: Spontaneous
  Country: SE (occurrence: SE)
  Receive Date: 20191220
  Receipt Date: 20191220
  Transmission Date: 20200122
  Serious: Yes (Hospitalization)
  Sender: FDA-Public Use
  Company Number: SE-009507513-1912SWE007900

PATIENT
  Age: 24 Year
  Sex: Male

DRUGS (2)
  1. MONTELUKAST SODIUM. [Suspect]
     Active Substance: MONTELUKAST SODIUM
     Dosage: DOSE: 1400 MILLIGRAM
     Route: 048
     Dates: start: 20190601, end: 20190601
  2. PROPAVAN [Suspect]
     Active Substance: PROPIOMAZINE
     Dosage: DOSE: 1000 MILLIGRAM
     Route: 048
     Dates: start: 20190601, end: 20190601

REACTIONS (2)
  - Intentional overdose [Unknown]
  - Intentional self-injury [Unknown]

NARRATIVE: CASE EVENT DATE: 20190601
